FAERS Safety Report 5677234-1 (Version None)
Quarter: 2008Q1

REPORT INFORMATION
  Report Type: 
  Country: None (occurrence: None)
  Receive Date: 20080321
  Receipt Date: 20080321
  Transmission Date: 20080703
  Serious: Yes (Death)
  Sender: FDA-Public Use
  Company Number: None

PATIENT
  Age: 57 Year
  Sex: Male
  Weight: 187 kg

DRUGS (6)
  1. ENOXAPARIN SODIUM [Suspect]
     Indication: MYOCARDIAL INFARCTION
     Dosage: 30MG  BID  SQ
     Route: 058
     Dates: start: 20080213, end: 20080221
  2. ASPIRIN [Suspect]
     Indication: MYOCARDIAL INFARCTION
     Dosage: 81 MG DAILY PO
     Route: 048
     Dates: start: 20080213, end: 20080221
  3. AMPICILLIAN [Concomitant]
  4. ATROVENT [Concomitant]
  5. XOPENEX [Concomitant]
  6. ALBUTERAL [Concomitant]

REACTIONS (2)
  - GASTROINTESTINAL HAEMORRHAGE [None]
  - NO THERAPEUTIC RESPONSE [None]
